FAERS Safety Report 7312773-9 (Version None)
Quarter: 2011Q1

REPORT INFORMATION
  Report Type: 
  Country: None (occurrence: None)
  Receive Date: 20110224
  Receipt Date: 20110217
  Transmission Date: 20110831
  Serious: Yes (Hospitalization)
  Sender: FDA-Public Use
  Company Number: US-US-EMD SERONO, INC.-7042909

PATIENT
  Sex: Female
  Weight: 82 kg

DRUGS (8)
  1. REBIF [Suspect]
     Indication: MULTIPLE SCLEROSIS
     Route: 058
     Dates: start: 20070118
  2. CALCIUM + VITAMIN D [Concomitant]
     Indication: PROPHYLAXIS
  3. VITAMIN D [Concomitant]
     Indication: PROPHYLAXIS
  4. AMLODIPINE [Concomitant]
     Indication: HYPERTENSION
  5. LOSARTAN POTASSIUM [Concomitant]
     Indication: HYPERTENSION
  6. POLYETHYLENE GLYCOL [Concomitant]
     Indication: PROPHYLAXIS
  7. ROPINIROLE [Concomitant]
  8. HYDROCHLOROTHIAZIDE [Concomitant]
     Indication: FLUID RETENTION

REACTIONS (3)
  - CYST [None]
  - HYPERTONIC BLADDER [None]
  - BLOOD CHOLESTEROL INCREASED [None]
